FAERS Safety Report 11911166 (Version 1)
Quarter: 2016Q1

REPORT INFORMATION
  Report Type: Report from Study
  Country: US (occurrence: US)
  Receive Date: 20160112
  Receipt Date: 20160112
  Transmission Date: 20160526
  Serious: Yes (Other)
  Sender: FDA-Public Use
  Company Number: US-CONCORDIA PHARMACEUTICALS INC.-CO-PL-US-2016-011

PATIENT

DRUGS (4)
  1. PLAQUENIL [Suspect]
     Active Substance: HYDROXYCHLOROQUINE SULFATE
     Route: 065
  2. DHEA [Concomitant]
     Active Substance: PRASTERONE
     Route: 065
  3. ARAVA [Suspect]
     Active Substance: LEFLUNOMIDE
     Route: 065
  4. MEGASTRENGTH FISH OIL [Concomitant]

REACTIONS (6)
  - Rash [Unknown]
  - Cutaneous lupus erythematosus [Unknown]
  - Antinuclear antibody positive [Unknown]
  - Vasculitis [Unknown]
  - Butterfly rash [Unknown]
  - Psoriasis [Unknown]
